FAERS Safety Report 7728402-6 (Version None)
Quarter: 2011Q3

REPORT INFORMATION
  Report Type: 
  Country: None (occurrence: None)
  Receive Date: 20110905
  Receipt Date: 20110831
  Transmission Date: 20111222
  Serious: Yes (Other)
  Sender: FDA-Public Use
  Company Number: PHEH2011US03245

PATIENT
  Sex: Female

DRUGS (4)
  1. OXYCODONE HCL [Concomitant]
     Dosage: UNK UKN, UNK
  2. GILENYA [Suspect]
     Indication: MULTIPLE SCLEROSIS
     Dosage: 0.5 MG, DAILY
     Route: 048
     Dates: start: 20110404
  3. PATANOL [Concomitant]
     Dosage: UNK UKN, UNK
  4. APAP TAB [Concomitant]
     Dosage: UNK UKN, UNK

REACTIONS (4)
  - LACRIMATION INCREASED [None]
  - CROHN'S DISEASE [None]
  - PHOTOPHOBIA [None]
  - PAIN [None]
